FAERS Safety Report 5525638-X (Version None)
Quarter: 2007Q4

REPORT INFORMATION
  Report Type: 
  Country: None (occurrence: None)
  Receive Date: 20071120
  Receipt Date: 20071120
  Transmission Date: 20080405
  Serious: Yes (Life-Threatening, Hospitalization, Other)
  Sender: FDA-Public Use
  Company Number: None

PATIENT
  Sex: Male

DRUGS (1)
  1. DECADRON [Suspect]

REACTIONS (3)
  - CARDIAC ARREST [None]
  - ELECTROLYTE IMBALANCE [None]
  - IMPLANTABLE DEFIBRILLATOR MALFUNCTION [None]
